FAERS Safety Report 15601725 (Version 1)
Quarter: 2018Q4

REPORT INFORMATION
  Report Type: Report from Study
  Country: CA (occurrence: CA)
  Receive Date: 20181109
  Receipt Date: 20181109
  Transmission Date: 20190205
  Serious: Yes (Other)
  Sender: FDA-Public Use
  Company Number: PHHY2016CA076143

PATIENT
  Age: 47 Year
  Sex: Female

DRUGS (2)
  1. GILENYA [Suspect]
     Active Substance: FINGOLIMOD HYDROCHLORIDE
     Dosage: 2 DF, BID
     Route: 048
     Dates: start: 20181024
  2. GILENYA [Suspect]
     Active Substance: FINGOLIMOD HYDROCHLORIDE
     Indication: PRODUCT USED FOR UNKNOWN INDICATION
     Dosage: UNK
     Route: 048
     Dates: start: 20131204

REACTIONS (6)
  - Expanded disability status scale [Unknown]
  - Sunburn [Unknown]
  - Fine motor skill dysfunction [Unknown]
  - Extra dose administered [Unknown]
  - Balance disorder [Unknown]
  - Hemiparesis [Unknown]

NARRATIVE: CASE EVENT DATE: 20181024
